FAERS Safety Report 4488170-0 (Version None)
Quarter: 2004Q4

REPORT INFORMATION
  Report Type: 
  Country: None (occurrence: None)
  Receive Date: 20041025
  Receipt Date: 20041016
  Transmission Date: 20050328
  Serious: Yes (Hospitalization, Other)
  Sender: FDA-Public Use
  Company Number: 2003-03-1026

PATIENT
  Age: 43 Year
  Sex: Male
  Weight: 87.0906 kg

DRUGS (6)
  1. PEG-INTRON [Suspect]
     Indication: HEPATITIS C
     Dosage: SUBCUTANEOUS
     Route: 058
     Dates: start: 20011201, end: 20020501
  2. REBETOL [Suspect]
     Indication: HEPATITIS C
     Dosage: ORAL
     Route: 048
     Dates: start: 20011201, end: 20020501
  3. MULTI-VITAMINS [Concomitant]
  4. TRAZODONE HCL [Concomitant]
  5. VICODIN [Concomitant]
  6. NON-STEROIDAL ANTI-INFLAMMATORY AGENT (NOS) [Concomitant]

REACTIONS (19)
  - ABDOMINAL DISTENSION [None]
  - ANAEMIA [None]
  - ARTHRALGIA [None]
  - ASCITES [None]
  - BLOOD ALKALINE PHOSPHATASE INCREASED [None]
  - CALCINOSIS [None]
  - ERECTILE DYSFUNCTION [None]
  - ESSENTIAL HYPERTENSION [None]
  - FATIGUE [None]
  - HYPERCALCAEMIA [None]
  - LUNG NEOPLASM [None]
  - NEPHROSCLEROSIS [None]
  - OEDEMA PERIPHERAL [None]
  - PAIN IN EXTREMITY [None]
  - PANCREATITIS [None]
  - RENAL DISORDER [None]
  - RENAL FAILURE CHRONIC [None]
  - RENAL TUBULAR NECROSIS [None]
  - SARCOIDOSIS [None]
